FAERS Safety Report 9399513 (Version 3)
Quarter: 2014Q2

REPORT INFORMATION
  Report Type: Report from Study
  Country: GB (occurrence: GB)
  Receive Date: 20130715
  Receipt Date: 20140422
  Transmission Date: 20141212
  Serious: Yes (Death, Hospitalization, Disabling, Other)
  Sender: FDA-Public Use
  Company Number: GB-ROCHE-1248140

PATIENT
  Age: 81 Year
  Sex: Male

DRUGS (3)
  1. RANIBIZUMAB [Suspect]
     Indication: AGE-RELATED MACULAR DEGENERATION
     Route: 050
     Dates: start: 20120628
  2. RANIBIZUMAB [Suspect]
     Route: 050
     Dates: start: 20130425, end: 20130425
  3. FERROUS FUMARATE [Concomitant]
     Indication: ANAEMIA

REACTIONS (7)
  - Bronchopneumonia [Fatal]
  - Circulatory collapse [Unknown]
  - Haemoglobin decreased [Unknown]
  - Pallor [Unknown]
  - Dyspnoea [Unknown]
  - Pleural effusion [Unknown]
  - Weight decreased [Unknown]
